FAERS Safety Report 11882445 (Version 4)
Quarter: 2016Q1

REPORT INFORMATION
  Report Type: Spontaneous
  Country: ES (occurrence: ES)
  Receive Date: 20151231
  Receipt Date: 20160311
  Transmission Date: 20160526
  Serious: Yes (Life-Threatening, Hospitalization)
  Sender: FDA-Public Use
  Company Number: ES-ASTRAZENECA-2015SF30318

PATIENT
  Age: 8442 Day
  Sex: Female
  Weight: 52.8 kg

DRUGS (6)
  1. GLUCAGON. [Concomitant]
     Active Substance: GLUCAGON
     Indication: TYPE 1 DIABETES MELLITUS
     Dosage: DAILY, LATENCY: 281 DAYS
     Route: 058
     Dates: start: 20150310
  2. INSULIN GLARGINE [Concomitant]
     Active Substance: INSULIN GLARGINE
     Indication: TYPE 1 DIABETES MELLITUS
     Dosage: BID, LATENCY: 1212 DAYS. DOSE (22-0-34)
     Route: 058
     Dates: start: 20120821
  3. DAPAGLIFLOZIN [Suspect]
     Active Substance: DAPAGLIFLOZIN
     Indication: TYPE 1 DIABETES MELLITUS
     Route: 048
     Dates: start: 20150831, end: 20151215
  4. INSULIN GLARGINE [Concomitant]
     Active Substance: INSULIN GLARGINE
     Indication: TYPE 1 DIABETES MELLITUS
     Dosage: 56 IU DAILY
     Route: 058
     Dates: start: 20120821
  5. INSULIN LISPRO [Concomitant]
     Active Substance: INSULIN LISPRO
     Indication: TYPE 1 DIABETES MELLITUS
     Dosage: TID, LATENCY: 50 DAYS.DOSE (11-12-11)
     Route: 058
     Dates: start: 20151027
  6. INSULIN LISPRO [Concomitant]
     Active Substance: INSULIN LISPRO
     Indication: TYPE 1 DIABETES MELLITUS
     Dosage: 34 IU/KG
     Route: 058
     Dates: start: 20151027

REACTIONS (5)
  - Stress [Unknown]
  - Diabetic ketoacidosis [Recovered/Resolved]
  - Product use issue [Unknown]
  - Off label use [Unknown]
  - Exposure during pregnancy [Unknown]

NARRATIVE: CASE EVENT DATE: 20151215
